FAERS Safety Report 12340548 (Version 1)
Quarter: 2016Q2

REPORT INFORMATION
  Report Type: Spontaneous
  Country: US (occurrence: None)
  Receive Date: 20160505
  Receipt Date: 20160505
  Transmission Date: 20160815
  Serious: No
  Sender: FDA-Public Use
  Company Number: None

PATIENT
  Sex: Male

DRUGS (2)
  1. CORTISONE [Suspect]
     Active Substance: CORTISONE\HYDROCORTISONE
  2. HUMALOG [Suspect]
     Active Substance: INSULIN LISPRO

REACTIONS (8)
  - Impaired work ability [None]
  - Blood glucose increased [None]
  - Nerve injury [None]
  - Staphylococcal infection [None]
  - Glycosylated haemoglobin increased [None]
  - Abasia [None]
  - Exostosis [None]
  - Weight increased [None]
